FAERS Safety Report 18234262 (Version 2)
Quarter: 2020Q4

REPORT INFORMATION
  Report Type: Spontaneous
  Country: CA (occurrence: CA)
  Receive Date: 20200904
  Receipt Date: 20201013
  Transmission Date: 20210113
  Serious: Yes (Death, Hospitalization)
  Sender: FDA-Public Use
  Company Number: CA-PFIZER INC-2020071707

PATIENT
  Age: 48 Year
  Sex: Male

DRUGS (2)
  1. ZIRABEV [Suspect]
     Active Substance: BEVACIZUMAB-BVZR
     Dosage: 900 MG, EVERY 2 WEEKS
     Route: 042
     Dates: start: 20200204, end: 20200512
  2. ZIRABEV [Suspect]
     Active Substance: BEVACIZUMAB-BVZR
     Dosage: 700 MG, EVERY 2 WEEKS
     Route: 042
     Dates: start: 20191217

REACTIONS (2)
  - Disease progression [Fatal]
  - Pneumonia [Unknown]

NARRATIVE: CASE EVENT DATE: 20200414
